FAERS Safety Report 4723769-5 (Version None)
Quarter: 2005Q3

REPORT INFORMATION
  Report Type: 
  Country: None (occurrence: None)
  Receive Date: 20050725
  Receipt Date: 20050711
  Transmission Date: 20060218
  Serious: Yes (Life-Threatening)
  Sender: FDA-Public Use
  Company Number: FR-JNJFOC-20050702679

PATIENT
  Age: 67 Year
  Sex: Female

DRUGS (3)
  1. ZALDIAR [Suspect]
     Route: 048
  2. ARTHROTEC [Suspect]
     Route: 048
  3. ARTHROTEC [Suspect]
     Route: 048

REACTIONS (8)
  - BURNING SENSATION [None]
  - CONVULSION [None]
  - FLUSHING [None]
  - LOSS OF CONSCIOUSNESS [None]
  - MALAISE [None]
  - PARAESTHESIA [None]
  - URTICARIA [None]
  - VOMITING [None]
